FAERS Safety Report 7432942-7 (Version None)
Quarter: 2011Q2

REPORT INFORMATION
  Report Type: 
  Country: None (occurrence: None)
  Receive Date: 20110422
  Receipt Date: 20110418
  Transmission Date: 20111010
  Serious: Yes (Hospitalization, Other)
  Sender: FDA-Public Use
  Company Number: US-PFIZER INC-2009314323

PATIENT
  Sex: Female
  Weight: 9 kg

DRUGS (10)
  1. DILANTIN [Suspect]
     Indication: CONVULSION
     Dosage: 25MG IN THE MORNING AND 50MG IN THE EVENING
     Route: 048
     Dates: start: 20080801, end: 20080808
  2. FOSPHENYTOIN [Concomitant]
     Dosage: UNK
  3. TEGRETOL [Concomitant]
     Dosage: UNK
  4. VALIUM [Concomitant]
     Dosage: 6 MG, UNK
  5. DILANTIN [Suspect]
     Dosage: 50 MG, 2X/DAY
     Route: 048
     Dates: start: 20080808, end: 20080814
  6. PHENOBARBITAL [Concomitant]
     Dosage: 20 MG, 2X/DAY
     Route: 048
  7. KEPPRA [Concomitant]
     Dosage: UNK
  8. CEFTRIAXONE [Concomitant]
     Dosage: UNK
  9. TRILEPTAL [Concomitant]
     Dosage: UNK
  10. ATIVAN [Concomitant]
     Dosage: 1.2 MG, UNK

REACTIONS (1)
  - STEVENS-JOHNSON SYNDROME [None]
